FAERS Safety Report 22054857 (Version 1)
Quarter: 2023Q1

REPORT INFORMATION
  Report Type: Spontaneous
  Country: US (occurrence: US)
  Receive Date: 20230302
  Receipt Date: 20230302
  Transmission Date: 20230417
  Serious: Yes (Hospitalization)
  Sender: FDA-Public Use
  Company Number: US-BIOVITRUM-2022US15471

PATIENT
  Age: 0 Year
  Sex: Female
  Weight: 8 kg

DRUGS (10)
  1. SYNAGIS [Suspect]
     Active Substance: PALIVIZUMAB
     Indication: Fallot^s tetralogy
     Dosage: INTO THE MUSCLE
     Route: 030
     Dates: start: 202209
  2. SYNAGIS [Suspect]
     Active Substance: PALIVIZUMAB
     Indication: Ventricular septal defect
  3. SYNAGIS [Suspect]
     Active Substance: PALIVIZUMAB
     Indication: Hypoplastic left heart syndrome
  4. SYNAGIS [Suspect]
     Active Substance: PALIVIZUMAB
     Indication: Pulmonary artery stenosis
  5. SYNAGIS [Suspect]
     Active Substance: PALIVIZUMAB
     Indication: Liver disorder
  6. VITAMINS [Concomitant]
     Active Substance: VITAMINS
     Dosage: 250-50 ML DROPS
  7. URSODIOL [Concomitant]
     Active Substance: URSODIOL
     Dosage: 100 PERCENTAGE POWDER
  8. KEPPRA [Concomitant]
     Active Substance: LEVETIRACETAM
     Dosage: 100 MG/ML SOLUTION
  9. ASPIRIN [Concomitant]
     Active Substance: ASPIRIN
     Dosage: TAB CHEW
  10. LASIX [Concomitant]
     Active Substance: FUROSEMIDE
     Dosage: TABLET

REACTIONS (2)
  - Product dose omission issue [Unknown]
  - Post procedural complication [Recovered/Resolved]

NARRATIVE: CASE EVENT DATE: 20221001
